FAERS Safety Report 15821329 (Version 3)
Quarter: 2019Q2

REPORT INFORMATION
  Report Type: Report from Study
  Country: CA (occurrence: CA)
  Receive Date: 20190114
  Receipt Date: 20190502
  Transmission Date: 20190711
  Serious: Yes (Death, Hospitalization, Other)
  Sender: FDA-Public Use
  Company Number: CA-PFIZER INC-2019014979

PATIENT
  Age: 62 Year
  Sex: Female

DRUGS (14)
  1. EPIRUBICIN HCL [Suspect]
     Active Substance: EPIRUBICIN HYDROCHLORIDE
     Dosage: 170 IU, UNK
     Route: 065
     Dates: start: 2011, end: 2011
  2. FLUOROURACIL. [Suspect]
     Active Substance: FLUOROURACIL
     Dosage: 870 IU, UNK
     Route: 065
     Dates: start: 2011
  3. CASPOFUNGIN ACETATE. [Concomitant]
     Active Substance: CASPOFUNGIN ACETATE
     Indication: PRODUCT USE IN UNAPPROVED INDICATION
     Dosage: UNK
  4. DOCETAXEL. [Suspect]
     Active Substance: DOCETAXEL
     Indication: BREAST CANCER
     Dosage: 174 MG, EVERY 3 WEEKS
     Route: 042
     Dates: start: 2011
  5. EPIRUBICIN HCL [Suspect]
     Active Substance: EPIRUBICIN HYDROCHLORIDE
     Indication: BREAST CANCER
     Dosage: 170 IU, UNK
     Route: 065
     Dates: start: 2011, end: 2011
  6. FLUOROURACIL. [Suspect]
     Active Substance: FLUOROURACIL
     Dosage: 870 IU, UNK
     Route: 065
     Dates: start: 2011, end: 2011
  7. CYCLOPHOSPHAMIDE. [Suspect]
     Active Substance: CYCLOPHOSPHAMIDE
     Dosage: 870 IU, UNK
     Route: 065
  8. GRANULOCYTE COLONY STIMULATING FACTOR [Concomitant]
     Active Substance: GRANULOCYTE COLONY-STIMULATING FACTOR NOS
     Indication: PRODUCT USE IN UNAPPROVED INDICATION
     Dosage: UNK
  9. FLUOROURACIL. [Suspect]
     Active Substance: FLUOROURACIL
     Indication: BREAST CANCER
     Dosage: 870 IU, UNK
     Route: 065
     Dates: start: 2011, end: 2011
  10. CYCLOPHOSPHAMIDE. [Suspect]
     Active Substance: CYCLOPHOSPHAMIDE
     Indication: BREAST CANCER
     Dosage: 870 IU, UNK
     Route: 065
     Dates: start: 2011, end: 2011
  11. MEROPENEM. [Concomitant]
     Active Substance: MEROPENEM
     Indication: PRODUCT USE IN UNAPPROVED INDICATION
     Dosage: UNK
  12. EPIRUBICIN HCL [Suspect]
     Active Substance: EPIRUBICIN HYDROCHLORIDE
     Dosage: 170 IU, UNK
     Route: 065
     Dates: start: 2011
  13. CYCLOPHOSPHAMIDE. [Suspect]
     Active Substance: CYCLOPHOSPHAMIDE
     Dosage: 870 IU, UNK
     Route: 065
     Dates: start: 2011, end: 2011
  14. STERILE VANCOMYCIN HYDROCHLORIDE [Concomitant]
     Active Substance: VANCOMYCIN HYDROCHLORIDE
     Indication: PRODUCT USE IN UNAPPROVED INDICATION
     Dosage: UNK

REACTIONS (11)
  - Large intestine perforation [Fatal]
  - Death [Fatal]
  - Gastrointestinal necrosis [Fatal]
  - Gastritis [Fatal]
  - Ischaemic enteritis [Fatal]
  - Gas gangrene [Fatal]
  - Renal failure [Fatal]
  - Abscess [Fatal]
  - Peritonitis [Fatal]
  - Sepsis [Fatal]
  - Febrile neutropenia [Fatal]
